FAERS Safety Report 6854935-0 (Version None)
Quarter: 2010Q3

REPORT INFORMATION
  Report Type: 
  Country: None (occurrence: None)
  Receive Date: 20100717
  Receipt Date: 20080228
  Transmission Date: 20110219
  Serious: No
  Sender: FDA-Public Use
  Company Number: US-PFIZER INC-2008000893

PATIENT
  Sex: Male

DRUGS (4)
  1. CHANTIX [Suspect]
     Indication: SMOKING CESSATION THERAPY
     Dates: end: 20080101
  2. MORPHINE SULFATE [Concomitant]
  3. CLONAZEPAM [Concomitant]
  4. OXYCONTIN [Concomitant]

REACTIONS (1)
  - VOMITING [None]
